FAERS Safety Report 8536372-6 (Version None)
Quarter: 2012Q3

REPORT INFORMATION
  Report Type: 
  Country: None (occurrence: None)
  Receive Date: 20120725
  Receipt Date: 20120724
  Transmission Date: 20120928
  Serious: Yes (Hospitalization, Other)
  Sender: FDA-Public Use
  Company Number: JP-PFIZER INC-2012164146

PATIENT

DRUGS (1)
  1. ALDACTONE [Suspect]

REACTIONS (1)
  - INTERSTITIAL LUNG DISEASE [None]
